FAERS Safety Report 25431549 (Version 1)
Quarter: 2025Q2

REPORT INFORMATION
  Report Type: Spontaneous
  Country: US (occurrence: US)
  Receive Date: 20250613
  Receipt Date: 20250613
  Transmission Date: 20250717
  Serious: No
  Sender: AVKARE
  Company Number: US-AvKARE-2178462

PATIENT
  Sex: Male

DRUGS (1)
  1. ARTIFICIAL TEARS (DEXTRAN 70\GLYCERIN\HYPROMELLOSES) [Suspect]
     Active Substance: DEXTRAN 70\GLYCERIN\HYPROMELLOSES

REACTIONS (1)
  - Ocular hyperaemia [Unknown]
